FAERS Safety Report 8551677-0 (Version None)
Quarter: 2012Q3

REPORT INFORMATION
  Report Type: 
  Country: None (occurrence: None)
  Receive Date: 20120723
  Receipt Date: 20120723
  Transmission Date: 20120928
  Serious: Yes (Hospitalization)
  Sender: FDA-Public Use
  Company Number: None

PATIENT
  Age: 60 Year
  Sex: Male
  Weight: 76.2043 kg

DRUGS (2)
  1. PRADAXA [Suspect]
     Indication: THROMBOSIS PROPHYLAXIS
     Dosage: 1 TAB TWICE DAILY PO
     Route: 048
  2. PRADAXA [Suspect]
     Indication: CEREBROVASCULAR ACCIDENT PROPHYLAXIS
     Dosage: 1 TAB TWICE DAILY PO
     Route: 048

REACTIONS (5)
  - RASH [None]
  - DYSGEUSIA [None]
  - EPISTAXIS [None]
  - GINGIVAL BLEEDING [None]
  - GASTRIC DISORDER [None]
